FAERS Safety Report 25281439 (Version 2)
Quarter: 2025Q2

REPORT INFORMATION
  Report Type: Spontaneous
  Country: US (occurrence: US)
  Receive Date: 20250508
  Receipt Date: 20250519
  Transmission Date: 20250716
  Serious: Yes (Hospitalization)
  Sender: TEVA
  Company Number: US-TEVA-VS-3327527

PATIENT
  Age: 46 Year
  Sex: Female

DRUGS (7)
  1. CYCLOSPORINE [Suspect]
     Active Substance: CYCLOSPORINE
     Indication: Haemolytic anaemia
     Route: 065
  2. IMMUNE GLOBULIN NOS [Suspect]
     Active Substance: IMMUNE GLOBULIN NOS
     Indication: Haemolytic anaemia
     Route: 042
  3. RITUXIMAB [Suspect]
     Active Substance: RITUXIMAB
     Indication: Haemolytic anaemia
     Route: 042
  4. CLADRIBINE [Suspect]
     Active Substance: CLADRIBINE
     Indication: Chronic myelomonocytic leukaemia
     Route: 065
  5. GILTERITINIB [Suspect]
     Active Substance: GILTERITINIB
     Indication: Chronic myelomonocytic leukaemia
     Dosage: RECEIVED FOR 28 DAYS
     Route: 065
  6. CYTARABINE [Suspect]
     Active Substance: CYTARABINE
     Indication: Chronic myelomonocytic leukaemia
     Dosage: RECEIVED FOR 10 DAYS
     Route: 058
  7. METHYLPREDNISOLONE [Suspect]
     Active Substance: METHYLPREDNISOLONE
     Indication: Haemolytic anaemia
     Route: 065

REACTIONS (2)
  - Haemolytic anaemia [Recovering/Resolving]
  - Drug ineffective [Unknown]
